FAERS Safety Report 8999778 (Version 2)
Quarter: 2013Q1

REPORT INFORMATION
  Report Type: Report from Study
  Country: US (occurrence: US)
  Receive Date: 20130102
  Receipt Date: 20130107
  Transmission Date: 20140127
  Serious: Yes (Hospitalization, Other)
  Sender: FDA-Public Use
  Company Number: US-ABBOTT-12P-163-1029002-00

PATIENT
  Sex: Female
  Weight: 78.09 kg

DRUGS (5)
  1. HUMIRA [Suspect]
     Indication: RHEUMATOID ARTHRITIS
     Route: 058
     Dates: start: 20090714, end: 20120813
  2. HUMIRA [Suspect]
     Dates: start: 20121205
  3. CALCIUM [Concomitant]
     Indication: MINERAL SUPPLEMENTATION
  4. SYNTHROID [Concomitant]
     Indication: THYROID DISORDER
  5. MULTIVITAMIN [Concomitant]
     Indication: VITAMIN SUPPLEMENTATION

REACTIONS (5)
  - Peripheral embolism [Recovered/Resolved]
  - Basal cell carcinoma [Recovered/Resolved]
  - Mobility decreased [Unknown]
  - Rheumatoid arthritis [Not Recovered/Not Resolved]
  - Fatigue [Not Recovered/Not Resolved]
